FAERS Safety Report 23785713 (Version 1)
Quarter: 2024Q2

REPORT INFORMATION
  Report Type: Spontaneous
  Country: HU (occurrence: HU)
  Receive Date: 20240425
  Receipt Date: 20240425
  Transmission Date: 20240715
  Serious: Yes (Hospitalization, Disabling, Other)
  Sender: FDA-Public Use
  Company Number: None

PATIENT
  Age: 49 Year
  Sex: Male
  Weight: 117 kg

DRUGS (3)
  1. KENALOG [Suspect]
     Active Substance: TRIAMCINOLONE ACETONIDE
     Indication: Musculoskeletal pain
     Route: 030
     Dates: start: 20100126, end: 20230314
  2. KENALOG [Suspect]
     Active Substance: TRIAMCINOLONE ACETONIDE
     Indication: Arthritis
  3. KENALOG [Suspect]
     Active Substance: TRIAMCINOLONE ACETONIDE
     Indication: Arthralgia

REACTIONS (19)
  - Dyspepsia [Not Recovered/Not Resolved]
  - Arthritis reactive [Not Recovered/Not Resolved]
  - Presyncope [Recovered/Resolved]
  - Hair growth abnormal [Not Recovered/Not Resolved]
  - Erectile dysfunction [Not Recovered/Not Resolved]
  - Chronic inflammatory demyelinating polyradiculoneuropathy [Not Recovered/Not Resolved]
  - Hypertension [Recovered/Resolved]
  - Insomnia [Not Recovered/Not Resolved]
  - Dermatitis [Not Recovered/Not Resolved]
  - Nausea [Recovered/Resolved]
  - Cataract [Not Recovered/Not Resolved]
  - Hyperlipidaemia [Not Recovered/Not Resolved]
  - Petechiae [Not Recovered/Not Resolved]
  - Hot flush [Not Recovered/Not Resolved]
  - Hyperhidrosis [Not Recovered/Not Resolved]
  - Diabetes mellitus [Not Recovered/Not Resolved]
  - Influenza like illness [Not Recovered/Not Resolved]
  - Dizziness [Recovered/Resolved]
  - Tendon injury [Not Recovered/Not Resolved]

NARRATIVE: CASE EVENT DATE: 20100201
